FAERS Safety Report 7634262-4 (Version None)
Quarter: 2011Q3

REPORT INFORMATION
  Report Type: 
  Country: None (occurrence: None)
  Receive Date: 20110725
  Receipt Date: 20110718
  Transmission Date: 20111222
  Serious: Yes (Hospitalization, Other)
  Sender: FDA-Public Use
  Company Number: US-BAYER-2011-063032

PATIENT
  Sex: Female

DRUGS (1)
  1. YAZ [Suspect]
     Indication: PRODUCT USED FOR UNKNOWN INDICATION
     Dosage: UNK
     Dates: start: 20040101, end: 20080901

REACTIONS (5)
  - PAIN [None]
  - ARTERY DISSECTION [None]
  - ARRHYTHMIA [None]
  - CARDIAC ARREST [None]
  - THROMBOPHLEBITIS SUPERFICIAL [None]
